FAERS Safety Report 7404402-0 (Version None)
Quarter: 2011Q2

REPORT INFORMATION
  Report Type: 
  Country: None (occurrence: None)
  Receive Date: 20110408
  Receipt Date: 20110405
  Transmission Date: 20111010
  Serious: Yes (Death)
  Sender: FDA-Public Use
  Company Number: MX-SANOFI-AVENTIS-2011SA020786

PATIENT
  Age: 79 Year
  Sex: Male

DRUGS (2)
  1. PLAVIX [Suspect]
     Route: 048
     Dates: end: 20090907
  2. ANTIHYPERTENSIVES [Concomitant]
     Dates: end: 20090907

REACTIONS (1)
  - CARDIO-RESPIRATORY ARREST [None]
